FAERS Safety Report 9302792 (Version 1)
Quarter: 2013Q2

REPORT INFORMATION
  Report Type: Spontaneous
  Country: US (occurrence: US)
  Receive Date: 20130522
  Receipt Date: 20130522
  Transmission Date: 20140414
  Serious: Yes (Hospitalization)
  Sender: FDA-Public Use
  Company Number: US-JNJFOC-20130506614

PATIENT
  Age: 63 Year
  Sex: Male

DRUGS (10)
  1. XARELTO [Suspect]
     Indication: CEREBROVASCULAR ACCIDENT PROPHYLAXIS
     Dosage: ONCE IN THE MORNING
     Route: 048
     Dates: start: 20130512, end: 20130512
  2. XARELTO [Suspect]
     Indication: CEREBROVASCULAR ACCIDENT PROPHYLAXIS
     Route: 048
     Dates: start: 2011
  3. XARELTO [Suspect]
     Indication: ATRIAL FIBRILLATION
     Dosage: ONCE IN THE MORNING
     Route: 048
     Dates: start: 20130512, end: 20130512
  4. XARELTO [Suspect]
     Indication: ATRIAL FIBRILLATION
     Route: 048
     Dates: start: 2011
  5. QUINAPRIL [Concomitant]
     Route: 065
  6. TOPROL XL [Concomitant]
     Route: 065
  7. METFORMIN [Concomitant]
     Route: 065
  8. HYDROCHLOROTHIAZIDE [Concomitant]
     Route: 065
  9. DIGOXIN [Concomitant]
     Route: 065
  10. CELEXA [Concomitant]
     Route: 065

REACTIONS (2)
  - Coagulopathy [Not Recovered/Not Resolved]
  - Incorrect dose administered [Recovered/Resolved]
